FAERS Safety Report 12532937 (Version 1)
Quarter: 2016Q3

REPORT INFORMATION
  Report Type: Spontaneous
  Country: GB (occurrence: GB)
  Receive Date: 20160706
  Receipt Date: 20160706
  Transmission Date: 20161109
  Serious: Yes (Other)
  Sender: FDA-Public Use
  Company Number: PHHY2016GB044780

PATIENT
  Age: 35 Year
  Sex: Female
  Weight: 98 kg

DRUGS (6)
  1. METFORMIN [Concomitant]
     Active Substance: METFORMIN HYDROCHLORIDE
     Indication: POLYCYSTIC OVARIES
     Dosage: 1 G, BID
     Route: 048
  2. PENTASA [Concomitant]
     Active Substance: MESALAMINE
     Indication: COLITIS ULCERATIVE
     Dosage: 4 G, QD
     Route: 048
  3. ADOPORT [Suspect]
     Active Substance: TACROLIMUS
     Indication: COLITIS ULCERATIVE
     Dosage: 2.5 MG, BID
     Route: 048
     Dates: start: 20160229, end: 20160330
  4. FOLIC ACID. [Concomitant]
     Active Substance: FOLIC ACID
     Indication: PLANNING TO BECOME PREGNANT
     Dosage: 5 MG, QD
     Route: 048
  5. ADCAL D3 [Concomitant]
     Active Substance: CALCIUM CARBONATE\CHOLECALCIFEROL
     Indication: STEROID THERAPY
     Dosage: 2 DF, QD 8 WEEK COURSE
     Route: 048
     Dates: start: 20160118
  6. PREDNISOLONE. [Concomitant]
     Active Substance: PREDNISOLONE
     Indication: COLITIS ULCERATIVE
     Dosage: 40 MG, QD REDUCING BY 5 MG 8 WEEKS IN TOTAL
     Route: 048

REACTIONS (3)
  - Retinal vein occlusion [Not Recovered/Not Resolved]
  - Vision blurred [Not Recovered/Not Resolved]
  - Visual acuity reduced [Not Recovered/Not Resolved]

NARRATIVE: CASE EVENT DATE: 20160330
